FAERS Safety Report 8392867-X (Version None)
Quarter: 2012Q2

REPORT INFORMATION
  Report Type: 
  Country: None (occurrence: None)
  Receive Date: 20120529
  Receipt Date: 20110519
  Transmission Date: 20120825
  Serious: No
  Sender: FDA-Public Use
  Company Number: US-MYLANLABS-2011S1010485

PATIENT
  Age: 74 Year
  Sex: Male

DRUGS (3)
  1. ZOLPIDEM TARTRATE [Suspect]
     Indication: INSOMNIA
     Route: 048
     Dates: start: 20110513
  2. ALPRAZOLAM [Concomitant]
     Route: 048
  3. HYDROCODONE BITARTRATE [Concomitant]
     Route: 048

REACTIONS (3)
  - DRUG EFFECT DELAYED [None]
  - INSOMNIA [None]
  - INITIAL INSOMNIA [None]
